FAERS Safety Report 18108403 (Version 1)
Quarter: 2020Q3

REPORT INFORMATION
  Report Type: Spontaneous
  Country: ZA (occurrence: ZA)
  Receive Date: 20200804
  Receipt Date: 20200804
  Transmission Date: 20201103
  Serious: Yes (Other)
  Sender: FDA-Public Use
  Company Number: ZA-ELI_LILLY_AND_COMPANY-ZA202007009946

PATIENT
  Sex: Female

DRUGS (2)
  1. HUMALOG MIX75/25 [Suspect]
     Active Substance: INSULIN LISPRO
     Dosage: 25 ML, MORNING, NIGHT
     Route: 065
     Dates: start: 2017
  2. HUMALOG MIX75/25 [Suspect]
     Active Substance: INSULIN LISPRO
     Indication: PRODUCT USED FOR UNKNOWN INDICATION
     Dosage: 22 ML, MORNING, NIGHT
     Route: 065
     Dates: start: 2017

REACTIONS (7)
  - Limb injury [Unknown]
  - Impaired healing [Unknown]
  - Blood glucose increased [Recovering/Resolving]
  - Drug ineffective [Unknown]
  - Stress [Unknown]
  - Blood glucose abnormal [Unknown]
  - Accident [Unknown]

NARRATIVE: CASE EVENT DATE: 20191208
